FAERS Safety Report 4553307-1 (Version None)
Quarter: 2005Q1

REPORT INFORMATION
  Report Type: 
  Country: None (occurrence: None)
  Receive Date: 20050113
  Receipt Date: 20050104
  Transmission Date: 20050727
  Serious: No
  Sender: FDA-Public Use
  Company Number: 2005-123995-NL

PATIENT
  Age: 64 Year
  Sex: Female

DRUGS (7)
  1. MIRTAZAPINE [Suspect]
     Indication: DEPRESSION
     Dosage: 30MG/45 MG
     Route: 048
     Dates: end: 20041019
  2. MIRTAZAPINE [Suspect]
     Indication: DEPRESSION
     Dosage: 30MG/45 MG
     Route: 048
     Dates: start: 20041020, end: 20041111
  3. PAROXETINE HCL [Concomitant]
  4. DIAZEPAM [Concomitant]
  5. QUETIAPINE [Concomitant]
  6. AMITRIPTYLINE [Concomitant]
  7. ALBUTEROL [Concomitant]

REACTIONS (5)
  - ARTHRALGIA [None]
  - DISCOMFORT [None]
  - JOINT SWELLING [None]
  - MYALGIA [None]
  - PAIN [None]
